FAERS Safety Report 5062417-4 (Version None)
Quarter: 2006Q3

REPORT INFORMATION
  Report Type: 
  Country: None (occurrence: None)
  Receive Date: 20060703
  Receipt Date: 20060103
  Transmission Date: 20061208
  Serious: No
  Sender: FDA-Public Use
  Company Number: 2006S1000064

PATIENT
  Age: 33 Year
  Sex: Male

DRUGS (9)
  1. CLOZAPINE [Suspect]
     Indication: SCHIZOAFFECTIVE DISORDER
     Dosage: 100 MG;TID;ORAL
     Route: 048
  2. ALBUTEROL SPIROS [Concomitant]
  3. CLOTRIMAZOLE [Concomitant]
  4. VALPROATE SODIUM [Concomitant]
  5. GEMFIBROZIL [Concomitant]
  6. HALOPERIDOL [Concomitant]
  7. NAPROXEN [Concomitant]
  8. MAGNESIUM HYDROXIDE/ALUMINUM HYDROXIDE GEL, DRIED/SIMETICONE [Concomitant]
  9. LANSOPRAZOLE [Concomitant]

REACTIONS (1)
  - GRANULOCYTOPENIA [None]
